FAERS Safety Report 8860595 (Version 2)
Quarter: 2013Q2

REPORT INFORMATION
  Report Type: Report from Study
  Country: US (occurrence: US)
  Receive Date: 20121025
  Receipt Date: 20130416
  Transmission Date: 20140414
  Serious: Yes (Other)
  Sender: FDA-Public Use
  Company Number: US-US-EMD SERONO, INC.-7168998

PATIENT
  Age: 47 Year
  Sex: Female
  Weight: 112 kg

DRUGS (7)
  1. REBIF [Suspect]
     Indication: MULTIPLE SCLEROSIS
     Route: 058
     Dates: start: 20120730, end: 201210
  2. REBIF [Suspect]
     Route: 058
     Dates: start: 20130326
  3. REBIF [Suspect]
     Route: 058
     Dates: start: 20130408
  4. ARTHOTEC [Concomitant]
     Indication: OSTEOARTHRITIS
     Dates: start: 201210, end: 201303
  5. PLAQUENIL                          /00072602/ [Concomitant]
     Indication: OSTEOARTHRITIS
  6. FENTANYL [Concomitant]
     Indication: PAIN
  7. HYDROCODONE [Concomitant]
     Indication: PAIN

REACTIONS (2)
  - Osteoarthritis [Recovered/Resolved]
  - Irritable bowel syndrome [Unknown]
